FAERS Safety Report 16859821 (Version 1)
Quarter: 2019Q3

REPORT INFORMATION
  Report Type: Spontaneous
  Country: US (occurrence: US)
  Receive Date: 20190927
  Receipt Date: 20190927
  Transmission Date: 20191005
  Serious: No
  Sender: FDA-Public Use
  Company Number: US-009507513-1909USA013498

PATIENT
  Age: 69 Year
  Sex: Male

DRUGS (3)
  1. CUBICIN [Suspect]
     Active Substance: DAPTOMYCIN
     Indication: ENTEROCOCCAL INFECTION
     Dosage: 8 MILLIGRAM, EVERY 24 HOURS
     Route: 042
     Dates: start: 2017
  2. MEROPENEM. [Concomitant]
     Active Substance: MEROPENEM
     Indication: ENTEROCOCCAL INFECTION
     Dosage: 1 GRAM, Q12H
     Route: 042
     Dates: start: 2017
  3. CUBICIN [Suspect]
     Active Substance: DAPTOMYCIN
     Dosage: 10 MILLIGRAM, EVERY 24 HOURS
     Route: 042
     Dates: start: 2017

REACTIONS (1)
  - Off label use [Unknown]
